FAERS Safety Report 19452296 (Version 1)
Quarter: 2021Q2

REPORT INFORMATION
  Report Type: Spontaneous
  Country: CN (occurrence: CN)
  Receive Date: 20210623
  Receipt Date: 20210623
  Transmission Date: 20210717
  Serious: Yes (Other)
  Sender: FDA-Public Use
  Company Number: CN-ROCHE-2853122

PATIENT
  Age: 64 Year
  Sex: Male
  Weight: 60 kg

DRUGS (10)
  1. SODIUM CHLORIDE IV [Concomitant]
     Active Substance: SODIUM CHLORIDE
     Route: 041
     Dates: start: 20210604
  2. RITUXIMAB. [Suspect]
     Active Substance: RITUXIMAB
     Indication: DIFFUSE LARGE B-CELL LYMPHOMA
     Route: 042
     Dates: start: 20210604
  3. SODIUM CHLORIDE IV [Concomitant]
     Active Substance: SODIUM CHLORIDE
     Route: 041
     Dates: start: 20210605
  4. DOXORUBICIN HYDROCHLORIDE. [Suspect]
     Active Substance: DOXORUBICIN HYDROCHLORIDE
     Indication: DIFFUSE LARGE B-CELL LYMPHOMA
     Route: 041
     Dates: start: 20210605
  5. GLUCOSE [Concomitant]
     Active Substance: DEXTROSE
  6. SODIUM CHLORIDE IV [Concomitant]
     Active Substance: SODIUM CHLORIDE
     Route: 041
     Dates: start: 20210605
  7. CYCLOPHOSPHAMIDE. [Suspect]
     Active Substance: CYCLOPHOSPHAMIDE
     Indication: DIFFUSE LARGE B-CELL LYMPHOMA
     Route: 041
     Dates: start: 20210605
  8. SODIUM CHLORIDE IV [Concomitant]
     Active Substance: SODIUM CHLORIDE
     Route: 041
     Dates: start: 20210604
  9. RITUXIMAB. [Suspect]
     Active Substance: RITUXIMAB
     Route: 042
     Dates: start: 20210604
  10. VINDESINE SULFATE [Suspect]
     Active Substance: VINDESINE SULFATE
     Indication: DIFFUSE LARGE B-CELL LYMPHOMA
     Route: 042
     Dates: start: 20210605

REACTIONS (2)
  - White blood cell count decreased [Unknown]
  - Neutrophil count decreased [Unknown]

NARRATIVE: CASE EVENT DATE: 20210613
